FAERS Safety Report 6649136-5 (Version None)
Quarter: 2010Q1

REPORT INFORMATION
  Report Type: 
  Country: None (occurrence: None)
  Receive Date: 20100324
  Receipt Date: 20100315
  Transmission Date: 20100710
  Serious: Yes (Other)
  Sender: FDA-Public Use
  Company Number: FR-TEVA-228154ISR

PATIENT
  Sex: Female
  Weight: 16.3 kg

DRUGS (4)
  1. VINCRISTINE [Suspect]
     Indication: RHABDOMYOSARCOMA
     Route: 042
     Dates: start: 20091215, end: 20100122
  2. BEVACIZUMAB [Suspect]
     Indication: RHABDOMYOSARCOMA
     Route: 042
     Dates: start: 20091208, end: 20100212
  3. DOXORUBICIN HCL [Concomitant]
     Indication: RHABDOMYOSARCOMA
     Route: 042
     Dates: start: 20091208, end: 20100213
  4. IFOSFAMIDE [Concomitant]
     Indication: RHABDOMYOSARCOMA
     Route: 042
     Dates: start: 20091208, end: 20100212

REACTIONS (6)
  - ANAL FISSURE [None]
  - CONSTIPATION [None]
  - DERMATITIS BULLOUS [None]
  - IMPAIRED HEALING [None]
  - RASH [None]
  - SKIN EXFOLIATION [None]
